FAERS Safety Report 21169909 (Version 3)
Quarter: 2023Q1

REPORT INFORMATION
  Report Type: Spontaneous
  Country: US (occurrence: US)
  Receive Date: 20220804
  Receipt Date: 20230222
  Transmission Date: 20230418
  Serious: Yes (Other)
  Sender: FDA-Public Use
  Company Number: US-JNJFOC-20220758127

PATIENT
  Age: 7 Decade
  Sex: Female

DRUGS (1)
  1. ELMIRON [Suspect]
     Active Substance: PENTOSAN POLYSULFATE SODIUM
     Indication: Cystitis interstitial
     Route: 048
     Dates: start: 2007

REACTIONS (2)
  - Dry age-related macular degeneration [Recovering/Resolving]
  - Vitreous detachment [Unknown]

NARRATIVE: CASE EVENT DATE: 20180601
